FAERS Safety Report 15822365 (Version 1)
Quarter: 2019Q1

REPORT INFORMATION
  Report Type: Spontaneous
  Country: US (occurrence: US)
  Receive Date: 20190114
  Receipt Date: 20190114
  Transmission Date: 20190417
  Serious: No
  Sender: FDA-Public Use
  Company Number: US-PFIZER INC-2019012016

PATIENT
  Age: 69 Year
  Sex: Female

DRUGS (10)
  1. HYDROCODONE [Suspect]
     Active Substance: HYDROCODONE
     Dosage: UNK
  2. POVIDONE-IODINE. [Suspect]
     Active Substance: POVIDONE-IODINE
     Dosage: UNK
  3. SIMVASTATIN. [Suspect]
     Active Substance: SIMVASTATIN
     Dosage: UNK
  4. LISINOPRIL. [Suspect]
     Active Substance: LISINOPRIL
     Dosage: UNK
  5. LORAZEPAM. [Suspect]
     Active Substance: LORAZEPAM
     Dosage: UNK
  6. LOVASTATIN. [Suspect]
     Active Substance: LOVASTATIN
  7. OXYCODONE [Suspect]
     Active Substance: OXYCODONE
     Dosage: UNK
  8. DILAUDID [Suspect]
     Active Substance: HYDROMORPHONE HYDROCHLORIDE
     Dosage: UNK
  9. PERCOCET [Suspect]
     Active Substance: ACETAMINOPHEN\OXYCODONE HYDROCHLORIDE
     Dosage: UNK
  10. BETADINE [Suspect]
     Active Substance: POVIDONE-IODINE
     Dosage: UNK

REACTIONS (1)
  - Drug hypersensitivity [Unknown]
